FAERS Safety Report 8780390 (Version 1)
Quarter: 2012Q4

REPORT INFORMATION
  Report Type: Spontaneous
  Country: US (occurrence: None)
  Receive Date: 20120905
  Receipt Date: 20120905
  Transmission Date: 20130627
  Serious: Yes (Hospitalization)
  Sender: FDA-Public Use
  Company Number: None

PATIENT
  Age: 48 Year
  Sex: Male
  Weight: 79.7 kg

DRUGS (1)
  1. CEFTAROLINE [Suspect]
     Route: 042
     Dates: start: 20120724, end: 20120828

REACTIONS (5)
  - Empyema [None]
  - Purpura [None]
  - Rash pruritic [None]
  - Rash erythematous [None]
  - Oedema peripheral [None]
